FAERS Safety Report 4523934-6 (Version None)
Quarter: 2004Q4

REPORT INFORMATION
  Report Type: 
  Country: None (occurrence: None)
  Receive Date: 20041209
  Receipt Date: 20040622
  Transmission Date: 20050328
  Serious: Yes (Hospitalization)
  Sender: FDA-Public Use
  Company Number: 8297

PATIENT
  Age: 69 Year
  Sex: Female

DRUGS (8)
  1. FLUOROURACIL [Suspect]
     Indication: COLORECTAL CANCER
     Dosage: 148 MG WEEKLY, IV
     Route: 042
     Dates: start: 20010418, end: 20010504
  2. LEUCOVORIN [Suspect]
     Indication: COLORECTAL CANCER
     Dosage: 295 MG WEEKLY, IV
     Route: 042
     Dates: start: 20010418, end: 20010504
  3. IRINOTECAN [Suspect]
     Indication: COLORECTAL CANCER
     Dosage: 265 MG WEEKLY IV
     Route: 042
     Dates: start: 20010418, end: 20010504
  4. DOMPERIDONE [Concomitant]
  5. OMEPRAZOLE [Concomitant]
  6. LOPERAMIDE HCL [Concomitant]
  7. HYOSCINE HBR HYT [Concomitant]
  8. IBUPROFEN [Concomitant]

REACTIONS (7)
  - ABDOMINAL PAIN [None]
  - DIARRHOEA [None]
  - HAEMOGLOBIN DECREASED [None]
  - INFECTION [None]
  - NAUSEA [None]
  - NEUTROPHIL COUNT DECREASED [None]
  - VOMITING [None]
